FAERS Safety Report 8366125-3 (Version None)
Quarter: 2012Q2

REPORT INFORMATION
  Report Type: 
  Country: None (occurrence: None)
  Receive Date: 20120516
  Receipt Date: 20120516
  Transmission Date: 20120825
  Serious: Yes (Other)
  Sender: FDA-Public Use
  Company Number: None

PATIENT
  Age: 17 Year
  Sex: Male
  Weight: 137.1 kg

DRUGS (2)
  1. WARFARIN SODIUM [Suspect]
     Dosage: VARIED DOSAGES ONCE DAILY (ATTACHED)
  2. LOVENOX [Concomitant]

REACTIONS (2)
  - PRODUCT QUALITY ISSUE [None]
  - INTERNATIONAL NORMALISED RATIO DECREASED [None]
